FAERS Safety Report 5157814-2 (Version None)
Quarter: 2006Q4

REPORT INFORMATION
  Report Type: 
  Country: None (occurrence: None)
  Receive Date: 20061120
  Receipt Date: 20061120
  Transmission Date: 20070319
  Serious: Yes (Hospitalization)
  Sender: FDA-Public Use
  Company Number: None

PATIENT
  Age: 51 Year
  Sex: Female
  Weight: 90.7 kg

DRUGS (1)
  1. AVASTIN [Suspect]
     Indication: BREAST CANCER METASTATIC
     Dosage: 900 MG EVERY 2 WEEKS IV
     Route: 042
     Dates: start: 20060918, end: 20061107

REACTIONS (2)
  - GASTROINTESTINAL PERFORATION [None]
  - PNEUMOTHORAX [None]
